FAERS Safety Report 24734100 (Version 1)
Quarter: 2024Q4

REPORT INFORMATION
  Report Type: Spontaneous
  Country: DE (occurrence: DE)
  Receive Date: 20241214
  Receipt Date: 20241214
  Transmission Date: 20250115
  Serious: No
  Sender: ALKEM
  Company Number: None

PATIENT
  Age: 33 Year
  Sex: Female

DRUGS (15)
  1. MYCOPHENOLATE MOFETIL [Suspect]
     Active Substance: MYCOPHENOLATE MOFETIL
     Indication: Myasthenia gravis
     Dosage: 500 MILLIGRAM, QD
     Route: 065
  2. MYCOPHENOLATE MOFETIL [Suspect]
     Active Substance: MYCOPHENOLATE MOFETIL
     Indication: Myasthenic syndrome
  3. BORTEZOMIB [Suspect]
     Active Substance: BORTEZOMIB
     Indication: Myasthenia gravis
     Dosage: UNK 4 APPLICATIONS (1.3 MILLIGRAM PER SQUARE METER EACH)
     Route: 065
  4. BORTEZOMIB [Suspect]
     Active Substance: BORTEZOMIB
     Indication: Myasthenic syndrome
     Dosage: UNK
     Route: 065
  5. CYCLOPHOSPHAMIDE [Suspect]
     Active Substance: CYCLOPHOSPHAMIDE
     Indication: Myasthenia gravis
     Dosage: UNK
     Route: 065
  6. CYCLOPHOSPHAMIDE [Suspect]
     Active Substance: CYCLOPHOSPHAMIDE
     Indication: Myasthenic syndrome
  7. DARATUMUMAB [Suspect]
     Active Substance: DARATUMUMAB
     Indication: Myasthenia gravis
     Dosage: UNK
     Route: 065
  8. DARATUMUMAB [Suspect]
     Active Substance: DARATUMUMAB
     Indication: Myasthenic syndrome
  9. ECULIZUMAB [Suspect]
     Active Substance: ECULIZUMAB
     Indication: Myasthenia gravis
     Dosage: UNK
     Route: 065
  10. ECULIZUMAB [Suspect]
     Active Substance: ECULIZUMAB
     Indication: Myasthenic syndrome
  11. EFGARTIGIMOD ALFA [Suspect]
     Active Substance: EFGARTIGIMOD ALFA
     Indication: Myasthenia gravis
     Dosage: UNK
     Route: 065
  12. EFGARTIGIMOD ALFA [Suspect]
     Active Substance: EFGARTIGIMOD ALFA
     Indication: Myasthenic syndrome
  13. RITUXIMAB [Suspect]
     Active Substance: RITUXIMAB
     Indication: Myasthenia gravis
     Dosage: UNK
     Route: 065
  14. RITUXIMAB [Suspect]
     Active Substance: RITUXIMAB
     Indication: Myasthenic syndrome
  15. Immunoglobulin [Concomitant]
     Indication: Immunoglobulin therapy
     Dosage: UNK (THE MAXIMUM DOSE RANGE)) GRAM
     Route: 042

REACTIONS (3)
  - Pancreatic enzymes increased [Unknown]
  - Adverse drug reaction [Unknown]
  - Drug ineffective [Unknown]
